FAERS Safety Report 15683114 (Version 3)
Quarter: 2019Q1

REPORT INFORMATION
  Report Type: Spontaneous
  Country: US (occurrence: US)
  Receive Date: 20181204
  Receipt Date: 20190120
  Transmission Date: 20190417
  Serious: No
  Sender: FDA-Public Use
  Company Number: US-AMGEN INC.-USASP2018172363

PATIENT
  Age: 42 Year
  Sex: Female

DRUGS (8)
  1. CYMBALTA [Concomitant]
     Active Substance: DULOXETINE HYDROCHLORIDE
     Dosage: 60 MG, QD, 2 DELAYED RELEASE CAPSULE
     Route: 048
     Dates: start: 20171214
  2. MAGNESIUM OXIDE. [Concomitant]
     Active Substance: MAGNESIUM OXIDE
     Dosage: 400 MG, UNK
     Dates: start: 20170223
  3. OMEPRAZOLE. [Concomitant]
     Active Substance: OMEPRAZOLE
     Dosage: 40 MG, QD, DELAYED RELEASE
     Route: 048
     Dates: start: 20160126
  4. BUPROPION. [Concomitant]
     Active Substance: BUPROPION
     Dosage: 450 MG, QD, EXTENDED RELEASE
     Route: 048
     Dates: start: 20180305
  5. DOXEPIN [Concomitant]
     Active Substance: DOXEPIN
     Dosage: 10 MG, AT BEDTIME
     Route: 048
     Dates: start: 20180424
  6. ARIPIPRAZOLE. [Concomitant]
     Active Substance: ARIPIPRAZOLE
     Dosage: 5 MG, QD
     Route: 048
     Dates: start: 20180424
  7. AIMOVIG [Suspect]
     Active Substance: ERENUMAB-AOOE
     Indication: MIGRAINE
     Dosage: 70 MG, QMO
     Route: 058
     Dates: start: 201807, end: 201808
  8. ACETAMINOPHEN. [Concomitant]
     Active Substance: ACETAMINOPHEN
     Dosage: 500 MG, UNK
     Dates: start: 20170223

REACTIONS (1)
  - Headache [Recovered/Resolved]

NARRATIVE: CASE EVENT DATE: 201807
